FAERS Safety Report 7150958-5 (Version None)
Quarter: 2010Q4

REPORT INFORMATION
  Report Type: 
  Country: None (occurrence: None)
  Receive Date: 20101210
  Receipt Date: 20101206
  Transmission Date: 20110411
  Serious: Yes (Hospitalization)
  Sender: FDA-Public Use
  Company Number: A0872159A

PATIENT
  Sex: Female

DRUGS (12)
  1. TYKERB [Suspect]
     Indication: BREAST CANCER METASTATIC
     Dosage: 1250MG PER DAY
     Route: 048
     Dates: start: 20100623, end: 20100723
  2. XELODA [Concomitant]
     Route: 065
  3. SYNTHROID [Concomitant]
     Route: 065
  4. SENOKOT [Concomitant]
     Route: 065
  5. COLACE [Concomitant]
     Route: 065
  6. LASIX [Concomitant]
     Route: 065
  7. DECADRON [Concomitant]
     Route: 065
  8. ATIVAN [Concomitant]
     Route: 065
  9. PANTOLOC [Concomitant]
     Route: 065
  10. RABEPRAZOLE SODIUM [Concomitant]
     Route: 065
  11. SCOPOLAMINE [Concomitant]
     Route: 065
  12. UNKNOWN MEDICATION [Concomitant]

REACTIONS (8)
  - AMNESIA [None]
  - ASTHENIA [None]
  - CONFUSIONAL STATE [None]
  - FATIGUE [None]
  - GAIT DISTURBANCE [None]
  - OEDEMA PERIPHERAL [None]
  - PULMONARY EMBOLISM [None]
  - RASH [None]
